FAERS Safety Report 20484709 (Version 1)
Quarter: 2022Q1

REPORT INFORMATION
  Report Type: Spontaneous
  Country: US (occurrence: US)
  Receive Date: 20220217
  Receipt Date: 20220217
  Transmission Date: 20220424
  Serious: No
  Sender: FDA-Public Use
  Company Number: US-drreddys-SPO/USA/22/0146557

PATIENT
  Sex: Female

DRUGS (1)
  1. FEXOFENADINE HCL [Suspect]
     Active Substance: FEXOFENADINE HYDROCHLORIDE
     Indication: Sneezing

REACTIONS (3)
  - Product administration error [Unknown]
  - Drug ineffective [Unknown]
  - Product quality issue [Unknown]
